FAERS Safety Report 5952037-9 (Version None)
Quarter: 2008Q4

REPORT INFORMATION
  Report Type: 
  Country: None (occurrence: None)
  Receive Date: 20081113
  Receipt Date: 20080229
  Transmission Date: 20090506
  Serious: No
  Sender: FDA-Public Use
  Company Number: A0701971A

PATIENT
  Age: 67 Year
  Sex: Male

DRUGS (4)
  1. COREG [Suspect]
     Dosage: 3.125MG TWICE PER DAY
     Route: 048
     Dates: start: 20050601
  2. AVAPRO [Concomitant]
  3. IMDUR [Concomitant]
  4. XANAX [Concomitant]
     Indication: ANXIETY

REACTIONS (7)
  - CARDIOVASCULAR DISORDER [None]
  - DRUG INEFFECTIVE [None]
  - DYSPNOEA [None]
  - FATIGUE [None]
  - NOCTURIA [None]
  - PERIPHERAL COLDNESS [None]
  - QUALITY OF LIFE DECREASED [None]
